FAERS Safety Report 10149755 (Version 1)
Quarter: 2014Q2

REPORT INFORMATION
  Report Type: Spontaneous
  Country: US (occurrence: None)
  Receive Date: 20140501
  Receipt Date: 20140501
  Transmission Date: 20141212
  Serious: No
  Sender: FDA-Public Use
  Company Number: None

PATIENT
  Age: 91 Year
  Sex: Female
  Weight: 57.15 kg

DRUGS (6)
  1. NITROFURANTOIN [Suspect]
     Indication: URINARY TRACT INFECTION
     Dosage: 1 CAP
     Route: 048
     Dates: start: 20140409, end: 20140411
  2. ESTRADIOL [Concomitant]
  3. VAG-CREAM [Concomitant]
  4. .81 ASPIRIN [Concomitant]
  5. IRON D [Concomitant]
  6. PROBIOTIC [Concomitant]

REACTIONS (1)
  - Rash [None]
